FAERS Safety Report 11096446 (Version 2)
Quarter: 2015Q4

REPORT INFORMATION
  Report Type: Report from Study
  Country: CA (occurrence: CA)
  Receive Date: 20150507
  Receipt Date: 20151009
  Transmission Date: 20160304
  Serious: Yes (Hospitalization, Other)
  Sender: FDA-Public Use
  Company Number: CA-JNJFOC-20150217573

PATIENT
  Age: 33 Year
  Sex: Female
  Weight: 102 kg

DRUGS (9)
  1. REMICADE [Suspect]
     Active Substance: INFLIXIMAB
     Indication: COLITIS ULCERATIVE
     Route: 042
     Dates: start: 201005
  2. REMICADE [Suspect]
     Active Substance: INFLIXIMAB
     Indication: COLITIS
     Route: 042
     Dates: start: 201106
  3. REMICADE [Suspect]
     Active Substance: INFLIXIMAB
     Indication: COLITIS ULCERATIVE
     Route: 042
     Dates: start: 201105
  4. REMICADE [Suspect]
     Active Substance: INFLIXIMAB
     Indication: COLITIS ULCERATIVE
     Route: 042
     Dates: start: 201106
  5. DICLECTIN [Suspect]
     Active Substance: DOXYLAMINE SUCCINATE\PYRIDOXINE HYDROCHLORIDE
     Indication: NAUSEA
     Dosage: 10/10 MG
     Route: 048
     Dates: start: 20141030, end: 201501
  6. METOPROLOL [Suspect]
     Active Substance: METOPROLOL
     Indication: TACHYCARDIA
     Dosage: 16 WEEKS
     Route: 048
     Dates: start: 201412
  7. EFFEXOR [Suspect]
     Active Substance: VENLAFAXINE HYDROCHLORIDE
     Indication: DEPRESSION
     Dosage: 4 WEEKS
     Route: 048
     Dates: start: 20141030
  8. REMICADE [Suspect]
     Active Substance: INFLIXIMAB
     Indication: COLITIS
     Route: 042
     Dates: start: 201105
  9. REMICADE [Suspect]
     Active Substance: INFLIXIMAB
     Indication: COLITIS
     Route: 042
     Dates: start: 201005

REACTIONS (10)
  - Depression [Unknown]
  - Postpartum depression [Unknown]
  - Incisional drainage [Not Recovered/Not Resolved]
  - Post procedural infection [Recovered/Resolved]
  - Ventricular extrasystoles [Unknown]
  - Sinus tachycardia [Unknown]
  - Nausea [Unknown]
  - Exposure during pregnancy [Recovered/Resolved]
  - Caesarean section [Unknown]
  - Arthritis [Unknown]

NARRATIVE: CASE EVENT DATE: 201409
